FAERS Safety Report 6331061-0 (Version None)
Quarter: 2009Q3

REPORT INFORMATION
  Report Type: 
  Country: None (occurrence: None)
  Receive Date: 20090827
  Receipt Date: 20090820
  Transmission Date: 20100115
  Serious: Yes (Other)
  Sender: FDA-Public Use
  Company Number: B0589451A

PATIENT
  Sex: Female
  Weight: 26 kg

DRUGS (7)
  1. LAMICTAL [Suspect]
     Indication: DRUG USE FOR UNKNOWN INDICATION
     Dosage: 12.5MG PER DAY
     Route: 048
     Dates: start: 20090729, end: 20090803
  2. MOGADON [Suspect]
     Indication: DRUG USE FOR UNKNOWN INDICATION
     Dosage: 5MG PER DAY
     Route: 048
     Dates: start: 20090731, end: 20090802
  3. FERROSTRANE [Concomitant]
     Indication: DRUG USE FOR UNKNOWN INDICATION
     Dosage: 4SP PER DAY
     Route: 048
     Dates: start: 20090723
  4. RIVOTRIL [Concomitant]
     Indication: DRUG USE FOR UNKNOWN INDICATION
     Route: 065
  5. NULYTELY [Concomitant]
     Indication: DRUG USE FOR UNKNOWN INDICATION
     Route: 048
  6. CODENFAN [Concomitant]
     Indication: DRUG USE FOR UNKNOWN INDICATION
     Route: 065
  7. TEGRETOL [Concomitant]
     Indication: DRUG USE FOR UNKNOWN INDICATION
     Route: 065
     Dates: start: 20090802, end: 20090809

REACTIONS (11)
  - ABNORMAL BEHAVIOUR [None]
  - ARTHRALGIA [None]
  - MEDICATION ERROR [None]
  - MYALGIA [None]
  - NEUTROPENIA [None]
  - PETECHIAE [None]
  - PYREXIA [None]
  - RASH PAPULAR [None]
  - REBOUND EFFECT [None]
  - URTICARIA [None]
  - WRONG TECHNIQUE IN DRUG USAGE PROCESS [None]
